FAERS Safety Report 4525257-8 (Version None)
Quarter: 2004Q4

REPORT INFORMATION
  Report Type: 
  Country: None (occurrence: None)
  Receive Date: 20041117
  Receipt Date: 20040309
  Transmission Date: 20050328
  Serious: Yes (Other)
  Sender: FDA-Public Use
  Company Number: 2004S1000704

PATIENT
  Age: 22 Year
  Sex: Male

DRUGS (4)
  1. CLOZAPINE [Suspect]
     Indication: SCHIZOAFFECTIVE DISORDER
     Dosage: 600MG QD, ORAL
     Route: 048
     Dates: start: 20020901
  2. CLOZAPINE [Suspect]
     Indication: SCHIZOPHRENIA
     Dosage: 600MG QD, ORAL
     Route: 048
     Dates: start: 20020901
  3. PAROXETINE HYDROCHLORIDE [Concomitant]
  4. LITHIUM CARBONATE SLOW-RELEASE [Concomitant]

REACTIONS (1)
  - EOSINOPHIL PERCENTAGE ABNORMAL [None]
